FAERS Safety Report 5883443-9 (Version None)
Quarter: 2008Q3

REPORT INFORMATION
  Report Type: 
  Country: None (occurrence: None)
  Receive Date: 20080910
  Receipt Date: 20071207
  Transmission Date: 20090109
  Serious: Yes (Hospitalization)
  Sender: FDA-Public Use
  Company Number: 2007-01211FE

PATIENT
  Age: 28 Year
  Sex: Female

DRUGS (2)
  1. DDAVP [Suspect]
     Indication: PLATELET DISORDER
  2. TRANEXAMIC ACID ()(TRANEXAMIC ACID) [Suspect]
     Indication: PLATELET DISORDER
     Dosage: 3 G PO
     Route: 048

REACTIONS (4)
  - CONDITION AGGRAVATED [None]
  - CORONARY ARTERY OCCLUSION [None]
  - MYOCARDIAL INFARCTION [None]
  - PLATELET DISORDER [None]
